FAERS Safety Report 14078040 (Version 1)
Quarter: 2017Q4

REPORT INFORMATION
  Report Type: Spontaneous
  Country: HU (occurrence: HU)
  Receive Date: 20171012
  Receipt Date: 20171012
  Transmission Date: 20180321
  Serious: Yes (Death)
  Sender: FDA-Public Use
  Company Number: HU-ROCHE-1975408

PATIENT
  Age: 76 Year
  Sex: Male

DRUGS (1)
  1. ACTILYSE [Suspect]
     Active Substance: ALTEPLASE
     Indication: ILL-DEFINED DISORDER
     Route: 042
     Dates: start: 2009, end: 2009

REACTIONS (3)
  - Chest pain [Unknown]
  - Respiratory failure [Fatal]
  - Circulatory collapse [Fatal]
